FAERS Safety Report 9005472 (Version 2)
Quarter: 2013Q1

REPORT INFORMATION
  Report Type: Spontaneous
  Country: US (occurrence: US)
  Receive Date: 20130109
  Receipt Date: 20130211
  Transmission Date: 20140127
  Serious: Yes (Death)
  Sender: FDA-Public Use
  Company Number: US-PFIZER INC-2013006270

PATIENT
  Age: 55 Year
  Sex: Male

DRUGS (8)
  1. GABAPENTIN [Suspect]
     Dosage: UNK
  2. ATORVASTATIN CALCIUM [Suspect]
  3. AMITRIPTYLINE [Suspect]
  4. MODAFINIL [Suspect]
  5. TAMSULOSIN [Suspect]
  6. TIZANIDINE [Suspect]
  7. CLONAZEPAM [Suspect]
  8. NATALIZUMAB [Suspect]

REACTIONS (2)
  - Completed suicide [Fatal]
  - Blood ethanol increased [Fatal]
